FAERS Safety Report 6721720-X (Version None)
Quarter: 2010Q2

REPORT INFORMATION
  Report Type: 
  Country: None (occurrence: None)
  Receive Date: 20100512
  Receipt Date: 20100506
  Transmission Date: 20101027
  Serious: Yes (Life-Threatening, Hospitalization)
  Sender: FDA-Public Use
  Company Number: NL-CELGENEUS-114-21880-10022159

PATIENT
  Sex: Male
  Weight: 72.6 kg

DRUGS (3)
  1. REVLIMID [Suspect]
     Route: 048
     Dates: start: 20100213, end: 20100223
  2. EPO [Suspect]
     Route: 058
     Dates: start: 20100213, end: 20100223
  3. FLAGYL [Concomitant]
     Route: 048
     Dates: start: 20100213, end: 20100223

REACTIONS (1)
  - SPLENIC HAEMORRHAGE [None]
